FAERS Safety Report 15585161 (Version 1)
Quarter: 2018Q4

REPORT INFORMATION
  Report Type: Spontaneous
  Country: FR (occurrence: FR)
  Receive Date: 20181105
  Receipt Date: 20181105
  Transmission Date: 20190205
  Serious: Yes (Death, Other)
  Sender: FDA-Public Use
  Company Number: FR-ALLERGAN-1851918US

PATIENT
  Age: 85 Year
  Sex: Female
  Weight: 44.6 kg

DRUGS (2)
  1. ESCITALOPRAM OXALATE - BP [Suspect]
     Active Substance: ESCITALOPRAM OXALATE
     Indication: DEPRESSION
     Dosage: 5 GTT, QD
     Route: 048
     Dates: end: 20180215
  2. ELIQUIS [Interacting]
     Active Substance: APIXABAN
     Indication: PULMONARY EMBOLISM
     Dosage: 5 MG, QD
     Route: 048
     Dates: start: 20170313, end: 20180207

REACTIONS (3)
  - Drug interaction [Recovered/Resolved]
  - Iron deficiency anaemia [Fatal]
  - Epistaxis [Recovered/Resolved]

NARRATIVE: CASE EVENT DATE: 20180127
